FAERS Safety Report 24540564 (Version 1)
Quarter: 2024Q4

REPORT INFORMATION
  Report Type: Spontaneous
  Country: US (occurrence: None)
  Receive Date: 20241023
  Receipt Date: 20241023
  Transmission Date: 20250114
  Serious: Yes (Hospitalization, Other)
  Sender: Public
  Company Number: None

PATIENT
  Sex: Female

DRUGS (1)
  1. ERTAPENEM [Suspect]
     Active Substance: ERTAPENEM

REACTIONS (4)
  - Hallucination, visual [None]
  - Hallucination, auditory [None]
  - Hallucination, tactile [None]
  - Klebsiella infection [None]
